FAERS Safety Report 12099328 (Version 1)
Quarter: 2016Q1

REPORT INFORMATION
  Report Type: Spontaneous
  Country: US (occurrence: US)
  Receive Date: 20160222
  Receipt Date: 20160222
  Transmission Date: 20160526
  Serious: No
  Sender: FDA-Public Use
  Company Number: US-TEVA-558751USA

PATIENT
  Age: 5 Year
  Sex: Female

DRUGS (2)
  1. AMOXOS [Suspect]
     Active Substance: AMOXICILLIN
     Indication: UPPER RESPIRATORY TRACT INFECTION
  2. ACETAMINOPHEN. [Interacting]
     Active Substance: ACETAMINOPHEN
     Route: 065

REACTIONS (3)
  - Food allergy [Unknown]
  - Drug interaction [Unknown]
  - Abdominal pain upper [Unknown]
